FAERS Safety Report 13491255 (Version 1)
Quarter: 2017Q2

REPORT INFORMATION
  Report Type: Spontaneous
  Country: JP (occurrence: JP)
  Receive Date: 20170427
  Receipt Date: 20170427
  Transmission Date: 20170830
  Serious: Yes (Other)
  Sender: FDA-Public Use
  Company Number: JP-TEVA-762404ROM

PATIENT
  Age: 62 Year
  Sex: Male

DRUGS (3)
  1. CICLOSPORIN [Suspect]
     Active Substance: CYCLOSPORINE
     Indication: SYSTEMIC LUPUS ERYTHEMATOSUS
     Dosage: 3MG/KG/DAY
     Route: 048
  2. PREDNISOLONE. [Suspect]
     Active Substance: PREDNISOLONE
     Indication: SYSTEMIC LUPUS ERYTHEMATOSUS
     Dosage: 20MG/DAY
     Route: 048
  3. GRISEOFULVIN. [Suspect]
     Active Substance: GRISEOFULVIN
     Dosage: 500 MG/DAY
     Route: 048

REACTIONS (2)
  - Trichophytic granuloma [Recovered/Resolved]
  - Hepatic function abnormal [Unknown]
